FAERS Safety Report 9281691 (Version 3)
Quarter: 2013Q2

REPORT INFORMATION
  Report Type: Spontaneous
  Country: FR (occurrence: FR)
  Receive Date: 20130509
  Receipt Date: 20130619
  Transmission Date: 20140414
  Serious: Yes (Hospitalization)
  Sender: FDA-Public Use
  Company Number: FR-AMGEN-FRASP2013031470

PATIENT
  Age: 69 Year
  Sex: Female

DRUGS (4)
  1. ARANESP [Suspect]
     Indication: REFRACTORY CYTOPENIA WITH UNILINEAGE DYSPLASIA
     Dosage: UNK
     Route: 058
     Dates: start: 201206, end: 20130328
  2. PLAVIX [Concomitant]
     Dosage: 75 MG, UNK
  3. APROVEL [Concomitant]
     Dosage: 150 MG, UNK
  4. TAHOR [Concomitant]
     Dosage: 10 MG, UNK

REACTIONS (1)
  - Aplasia pure red cell [Recovering/Resolving]
